FAERS Safety Report 5969039-9 (Version None)
Quarter: 2008Q4

REPORT INFORMATION
  Report Type: 
  Country: None (occurrence: None)
  Receive Date: 20081126
  Receipt Date: 20081118
  Transmission Date: 20090506
  Serious: Yes (Death)
  Sender: FDA-Public Use
  Company Number: US-ELI_LILLY_AND_COMPANY-US200811005111

PATIENT
  Age: 47 Year
  Sex: Female

DRUGS (3)
  1. ZYPREXA [Suspect]
  2. METHADONE HCL [Concomitant]
     Indication: PAIN
  3. PROMETHAZINE [Concomitant]

REACTIONS (2)
  - DRUG INTERACTION [None]
  - DRUG TOXICITY [None]
